FAERS Safety Report 7515467-X (Version None)
Quarter: 2011Q2

REPORT INFORMATION
  Report Type: 
  Country: None (occurrence: None)
  Receive Date: 20110601
  Receipt Date: 20100624
  Transmission Date: 20111010
  Serious: Yes (Other)
  Sender: FDA-Public Use
  Company Number: US-PFIZER INC-2010079835

PATIENT
  Sex: Female
  Weight: 66 kg

DRUGS (4)
  1. ADEFOVIR DIPIVOXIL [Concomitant]
     Dosage: UNK
  2. ZOLOFT [Concomitant]
     Dosage: UNK
  3. CHANTIX [Suspect]
     Dosage: 1 MG, 2X/DAY
     Dates: start: 20060101, end: 20060101
  4. CHANTIX [Suspect]
     Indication: SMOKING CESSATION THERAPY
     Dosage: 0.5 MG, 1X/DAY
     Route: 048
     Dates: start: 20060101, end: 20060101

REACTIONS (3)
  - WEIGHT DECREASED [None]
  - ARRHYTHMIA [None]
  - CHEST PAIN [None]
